FAERS Safety Report 20099047 (Version 1)
Quarter: 2021Q4

REPORT INFORMATION
  Report Type: Report from Study
  Country: US (occurrence: US)
  Receive Date: 20211122
  Receipt Date: 20211122
  Transmission Date: 20220304
  Serious: Yes (Other)
  Sender: FDA-Public Use
  Company Number: US-GILEAD-2021-0557747

PATIENT
  Sex: Female

DRUGS (9)
  1. IDELALISIB [Suspect]
     Active Substance: IDELALISIB
     Indication: Marginal zone lymphoma
     Dosage: 100 MG, BID
     Route: 048
     Dates: start: 2010
  2. VITAMIN B12 [Concomitant]
     Active Substance: CYANOCOBALAMIN
  3. BACTRIM DS [Concomitant]
     Active Substance: SULFAMETHOXAZOLE\TRIMETHOPRIM
  4. FOLIC ACID [Concomitant]
     Active Substance: FOLIC ACID
  5. LEVOTHYROXINE [Concomitant]
     Active Substance: LEVOTHYROXINE
  6. PANTOPRAZOLE [Concomitant]
     Active Substance: PANTOPRAZOLE
  7. VITAMIN D NOS [Concomitant]
     Active Substance: VITAMIN D NOS
  8. XOPENEX [Concomitant]
     Active Substance: LEVALBUTEROL HYDROCHLORIDE
  9. ALLOPURINOL [Concomitant]
     Active Substance: ALLOPURINOL

REACTIONS (16)
  - Cholecystectomy [Recovered/Resolved]
  - Pneumonia [Unknown]
  - Neuropathy peripheral [Not Recovered/Not Resolved]
  - Hypertension [Not Recovered/Not Resolved]
  - Hypothyroidism [Not Recovered/Not Resolved]
  - Hypercholesterolaemia [Not Recovered/Not Resolved]
  - Rhinitis allergic [Not Recovered/Not Resolved]
  - Arthritis [Not Recovered/Not Resolved]
  - Postmenopause [Not Recovered/Not Resolved]
  - Anaemia [Not Recovered/Not Resolved]
  - Vitamin B12 deficiency [Not Recovered/Not Resolved]
  - Hepatic steatosis [Not Recovered/Not Resolved]
  - Hysterectomy [Recovered/Resolved]
  - Diverticulum intestinal [Not Recovered/Not Resolved]
  - Osteoarthritis [Not Recovered/Not Resolved]
  - Spondylolisthesis [Not Recovered/Not Resolved]

NARRATIVE: CASE EVENT DATE: 20120806
